FAERS Safety Report 22619990 (Version 1)
Quarter: 2023Q2

REPORT INFORMATION
  Report Type: Spontaneous
  Country: US (occurrence: US)
  Receive Date: 20230620
  Receipt Date: 20230620
  Transmission Date: 20230721
  Serious: Yes (Other)
  Sender: FDA-Public Use
  Company Number: US-SA-2023SA184453

PATIENT
  Age: 81 Year
  Sex: Male

DRUGS (1)
  1. CEMIPLIMAB [Suspect]
     Active Substance: CEMIPLIMAB
     Indication: Squamous cell carcinoma of skin
     Dosage: 350 MG, Q3W (INFUSION)
     Route: 042
     Dates: start: 2020

REACTIONS (1)
  - Pneumocystis jirovecii infection [Unknown]

NARRATIVE: CASE EVENT DATE: 20200101
